FAERS Safety Report 18221793 (Version 1)
Quarter: 2020Q3

REPORT INFORMATION
  Report Type: Spontaneous
  Country: ES (occurrence: ES)
  Receive Date: 20200902
  Receipt Date: 20200902
  Transmission Date: 20201103
  Serious: Yes (Other)
  Sender: FDA-Public Use
  Company Number: ES-SUN PHARMACEUTICAL INDUSTRIES LTD-2019R1-221649

PATIENT
  Age: 57 Year
  Sex: Female

DRUGS (2)
  1. MESALAZINE [Suspect]
     Active Substance: MESALAMINE
     Dosage: 500 MG
     Route: 048
  2. MESALAZINE [Suspect]
     Active Substance: MESALAMINE
     Indication: PRODUCT USED FOR UNKNOWN INDICATION
     Dosage: 3 GRAM, DAILY
     Route: 048

REACTIONS (6)
  - Chest pain [Unknown]
  - Dyspnoea [Unknown]
  - Vomiting [Unknown]
  - Blood pressure decreased [Unknown]
  - Pyrexia [Recovered/Resolved]
  - Hepatotoxicity [Unknown]
